FAERS Safety Report 8295822-3 (Version None)
Quarter: 2012Q2

REPORT INFORMATION
  Report Type: 
  Country: None (occurrence: None)
  Receive Date: 20120418
  Receipt Date: 20120416
  Transmission Date: 20120825
  Serious: Yes (Hospitalization)
  Sender: FDA-Public Use
  Company Number: TR-ABBOTT-12P-161-0925928-00

PATIENT
  Age: 12 Year
  Sex: Male

DRUGS (8)
  1. VALPROATE SODIUM [Suspect]
     Indication: STATUS EPILEPTICUS
  2. PENTOBARBITAL CAP [Suspect]
     Indication: STATUS EPILEPTICUS
  3. PHENYTOIN [Suspect]
     Indication: STATUS EPILEPTICUS
  4. OSELTAMIVIR [Concomitant]
  5. MIDAZOLAM [Suspect]
     Indication: STATUS EPILEPTICUS
  6. ACYCLOVIR [Concomitant]
  7. PHENOBARBITAL TAB [Suspect]
     Indication: STATUS EPILEPTICUS
     Route: 042
  8. LEVETIRACETAM [Suspect]
     Indication: STATUS EPILEPTICUS

REACTIONS (2)
  - DRUG RESISTANCE [None]
  - STATUS EPILEPTICUS [None]
